FAERS Safety Report 18996984 (Version 1)
Quarter: 2021Q1

REPORT INFORMATION
  Report Type: Spontaneous
  Country: AL (occurrence: AL)
  Receive Date: 20210311
  Receipt Date: 20210311
  Transmission Date: 20210420
  Serious: No
  Sender: FDA-Public Use
  Company Number: None

PATIENT
  Age: 54 Year
  Sex: Male

DRUGS (1)
  1. ISOVUE [Suspect]
     Active Substance: IOPAMIDOL
     Indication: X-RAY WITH CONTRAST
     Dosage: ?       DOSE AMOUNT: ?370 UNK   OTHER FREQUENCY:X 1;?
     Route: 042
     Dates: start: 20210310, end: 20210310

REACTIONS (1)
  - Pruritus [None]

NARRATIVE: CASE EVENT DATE: 20210310
